FAERS Safety Report 20992631 (Version 1)
Quarter: 2022Q2

REPORT INFORMATION
  Report Type: Spontaneous
  Country: IT (occurrence: IT)
  Receive Date: 20220622
  Receipt Date: 20220622
  Transmission Date: 20220721
  Serious: Yes (Other)
  Sender: FDA-Public Use
  Company Number: IT-MYLANLABS-2022M1044899

PATIENT
  Age: 3 Decade
  Sex: Male

DRUGS (1)
  1. BEVACIZUMAB [Suspect]
     Active Substance: BEVACIZUMAB
     Indication: Metastases to meninges
     Dosage: 10 MG/KG, DOSE BIWEEKLY

REACTIONS (3)
  - Condition aggravated [Unknown]
  - Calcinosis [Unknown]
  - Off label use [Unknown]
